FAERS Safety Report 13827140 (Version 1)
Quarter: 2017Q3

REPORT INFORMATION
  Report Type: Spontaneous
  Country: US (occurrence: US)
  Receive Date: 20170802
  Receipt Date: 20170802
  Transmission Date: 20171127
  Serious: No
  Sender: FDA-Public Use
  Company Number: US-ROCHE-641128

PATIENT
  Age: 76 Year
  Sex: Female

DRUGS (2)
  1. OSCAL [Concomitant]
     Active Substance: CALCIUM CARBONATE
     Dosage: TAKEN FOR CALCIUM
     Route: 065
  2. BONIVA [Suspect]
     Active Substance: IBANDRONATE SODIUM
     Indication: OSTEOPOROSIS
     Dosage: ON DRUG FOR A COUPLE OF YEARS
     Route: 048

REACTIONS (1)
  - Ill-defined disorder [Not Recovered/Not Resolved]
